FAERS Safety Report 8438463-7 (Version None)
Quarter: 2012Q2

REPORT INFORMATION
  Report Type: 
  Country: None (occurrence: None)
  Receive Date: 20120615
  Receipt Date: 20120601
  Transmission Date: 20120825
  Serious: Yes (Other)
  Sender: FDA-Public Use
  Company Number: NL-AMGEN-NLDSP2012033345

PATIENT
  Age: 66 Year
  Sex: Female

DRUGS (7)
  1. ENBREL [Suspect]
     Indication: RHEUMATOID ARTHRITIS
     Dosage: 50 MG, WEEKLY
     Dates: start: 20120227
  2. SIMVASTATIN [Concomitant]
     Dosage: UNK
  3. PREDNISONE TAB [Concomitant]
     Dosage: 2.5 MG, UNK
  4. ARCOXIA [Concomitant]
     Dosage: 60 MG, UNK
  5. PLAQUENIL [Concomitant]
     Dosage: UNK
  6. IRBESARTAN [Concomitant]
     Dosage: UNK
  7. PARACETAMOL WITH CODEINE PHOSPHATE [Concomitant]
     Dosage: UNK

REACTIONS (7)
  - HYPERTENSION [None]
  - JOINT SWELLING [None]
  - ABDOMINAL DISTENSION [None]
  - CHEST PAIN [None]
  - UPPER RESPIRATORY TRACT INFECTION [None]
  - CARDIAC DISORDER [None]
  - DYSPNOEA [None]
